FAERS Safety Report 9604660 (Version 3)
Quarter: 2013Q4

REPORT INFORMATION
  Report Type: Spontaneous
  Country: US (occurrence: US)
  Receive Date: 20131008
  Receipt Date: 20131129
  Transmission Date: 20140711
  Serious: No
  Sender: FDA-Public Use
  Company Number: US-PFIZER INC-2013283871

PATIENT
  Age: 60 Year
  Sex: Female

DRUGS (11)
  1. XELJANZ [Suspect]
     Indication: RHEUMATOID ARTHRITIS
     Dosage: 5 MG, 2X/DAY
     Route: 048
     Dates: start: 201301
  2. OXYCONTIN [Concomitant]
     Dosage: UNK
  3. CELEBREX [Concomitant]
     Dosage: UNK
  4. VIT C [Concomitant]
     Dosage: UNK
  5. VIT D [Concomitant]
     Dosage: UNK
  6. QUINAPRIL [Concomitant]
     Dosage: UNK
  7. METAGLIP [Concomitant]
     Dosage: UNK
  8. HYDROCHLOROTHIAZIDE [Concomitant]
     Dosage: UNK
  9. METHOTREXATE [Concomitant]
     Dosage: 4 DF, WEEKLY
  10. FOLIC ACID [Concomitant]
     Dosage: UNK
  11. PREDNISONE [Concomitant]
     Dosage: 5 MG, DAILY

REACTIONS (2)
  - Drug effect incomplete [Unknown]
  - Pain [Unknown]
